FAERS Safety Report 18802246 (Version 1)
Quarter: 2021Q1

REPORT INFORMATION
  Report Type: Spontaneous
  Country: AT (occurrence: AT)
  Receive Date: 20210128
  Receipt Date: 20210128
  Transmission Date: 20210419
  Serious: Yes (Other)
  Sender: FDA-Public Use
  Company Number: AT-PFIZER INC-2021025304

PATIENT
  Age: 44 Year
  Sex: Female

DRUGS (9)
  1. XANOR [Suspect]
     Active Substance: ALPRAZOLAM
     Dosage: 1 MG
     Dates: start: 2000
  2. ZURCAL [Concomitant]
     Active Substance: PANTOPRAZOLE SODIUM
     Dosage: UNK
  3. NEUROBION FORTE [Concomitant]
     Active Substance: CYANOCOBALAMIN\PYRIDOXINE HYDROCHLORIDE\THIAMINE DISULFIDE
     Dosage: UNK
  4. LYRICA [Concomitant]
     Active Substance: PREGABALIN
     Dosage: 100 MG
  5. DULOXETINE. [Concomitant]
     Active Substance: DULOXETINE
     Dosage: 60 MG
  6. INDERAL [Concomitant]
     Active Substance: PROPRANOLOL HYDROCHLORIDE
     Dosage: UNK
  7. NEPHROTRANS [Concomitant]
     Active Substance: SODIUM BICARBONATE
     Dosage: UNK
  8. TRITTICO [Concomitant]
     Active Substance: TRAZODONE HYDROCHLORIDE
     Dosage: 150 MG
  9. DAFLON [BIOFLAVONOIDS NOS;DIOSMIN;HESPERIDIN] [Concomitant]
     Dosage: UNK

REACTIONS (2)
  - Bladder cancer [Unknown]
  - Drug ineffective [Unknown]
